FAERS Safety Report 7487499-1 (Version None)
Quarter: 2011Q2

REPORT INFORMATION
  Report Type: 
  Country: None (occurrence: None)
  Receive Date: 20110510
  Receipt Date: 20110502
  Transmission Date: 20111010
  Serious: Yes (Hospitalization)
  Sender: FDA-Public Use
  Company Number: DKLU1070234

PATIENT
  Age: 8 Year
  Sex: Male

DRUGS (11)
  1. SELENIUM (SELENIUM) [Concomitant]
  2. METFORMIN (METFORMIN) [Concomitant]
  3. TEGRETOL [Suspect]
     Indication: TUBEROUS SCLEROSIS
     Dosage: 500 MG MILLGIRAM(S), 2 IN 1 D ; 1000 MG MILLIGRAM(S), 2 IN 1 D
     Dates: end: 20110101
  4. TEGRETOL [Suspect]
     Indication: CONVULSION
     Dosage: 500 MG MILLGIRAM(S), 2 IN 1 D ; 1000 MG MILLIGRAM(S), 2 IN 1 D
     Dates: end: 20110101
  5. AFINITOR [Concomitant]
  6. SABRIL [Suspect]
     Indication: EPILEPSY
     Dosage: 1500 MG MILLIGRAM(S), QAM, ORAL ; 1250 MG MILLIGRAM(S), QPM, ORAL
     Route: 048
  7. MELATONIN (MELATONIN) [Concomitant]
  8. B VITAMIN COMPLEX (B-KOMPLEX) [Concomitant]
  9. TAURINE (TAURINE) [Concomitant]
  10. FLOVENT [Concomitant]
  11. RISPERDAL [Concomitant]

REACTIONS (2)
  - ANTICONVULSANT DRUG LEVEL BELOW THERAPEUTIC [None]
  - GRAND MAL CONVULSION [None]
